FAERS Safety Report 4326298-6 (Version None)
Quarter: 2004Q1

REPORT INFORMATION
  Report Type: 
  Country: None (occurrence: None)
  Receive Date: 20040325
  Receipt Date: 20031104
  Transmission Date: 20041129
  Serious: No
  Sender: FDA-Public Use
  Company Number: US053869

PATIENT
  Age: 50 Year
  Sex: Female

DRUGS (6)
  1. NEULASTA [Suspect]
     Indication: CHEMOTHERAPY
     Dosage: 6 MG, AFTER CHEMO, SC
     Route: 058
     Dates: start: 20021224
  2. PACLITAXEL [Concomitant]
  3. IFOSFAMIDE [Concomitant]
  4. CISPLATIN [Concomitant]
  5. DOXORUBICIN HYDROCHLORIDE [Concomitant]
  6. DOXORUBICIN HCL [Concomitant]

REACTIONS (1)
  - WHITE BLOOD CELL COUNT DECREASED [None]
